FAERS Safety Report 25387782 (Version 1)
Quarter: 2025Q2

REPORT INFORMATION
  Report Type: Spontaneous
  Country: BR (occurrence: BR)
  Receive Date: 20250603
  Receipt Date: 20250603
  Transmission Date: 20250716
  Serious: Yes (Other)
  Sender: SANOFI AVENTIS
  Company Number: BR-SA-2025SA154156

PATIENT

DRUGS (2)
  1. DUPIXENT [Suspect]
     Active Substance: DUPILUMAB
     Indication: Enterocolitis
  2. DUPIXENT [Suspect]
     Active Substance: DUPILUMAB
     Indication: Autoimmune hepatitis

REACTIONS (2)
  - Cholangitis [Unknown]
  - Product use in unapproved indication [Unknown]
